FAERS Safety Report 7355769-3 (Version None)
Quarter: 2011Q1

REPORT INFORMATION
  Report Type: 
  Country: None (occurrence: None)
  Receive Date: 20110316
  Receipt Date: 20110308
  Transmission Date: 20110831
  Serious: Yes (Other)
  Sender: FDA-Public Use
  Company Number: JP-MERCK-1103USA01650

PATIENT
  Age: 37 Year
  Sex: Female

DRUGS (3)
  1. CELECOX [Suspect]
     Route: 048
     Dates: start: 20110307, end: 20110307
  2. ARTZ [Concomitant]
     Route: 065
     Dates: start: 20110307
  3. PEPCID RPD [Suspect]
     Route: 048
     Dates: start: 20110307, end: 20110307

REACTIONS (3)
  - BLISTER [None]
  - RASH GENERALISED [None]
  - FACE OEDEMA [None]
